FAERS Safety Report 6860679-1 (Version None)
Quarter: 2010Q3

REPORT INFORMATION
  Report Type: 
  Country: None (occurrence: None)
  Receive Date: 20100720
  Receipt Date: 20100714
  Transmission Date: 20110219
  Serious: Yes (Other)
  Sender: FDA-Public Use
  Company Number: CA-ABBOTT-10P-028-0626541-00

PATIENT
  Sex: Female
  Weight: 54.48 kg

DRUGS (1)
  1. HUMIRA [Suspect]
     Indication: CROHN'S DISEASE
     Route: 058
     Dates: start: 20070503

REACTIONS (6)
  - FALL [None]
  - GRAND MAL CONVULSION [None]
  - JOINT DISLOCATION [None]
  - LIMB INJURY [None]
  - SKIN LACERATION [None]
  - WOUND HAEMORRHAGE [None]
